FAERS Safety Report 4694078-8 (Version None)
Quarter: 2005Q2

REPORT INFORMATION
  Report Type: 
  Country: None (occurrence: None)
  Receive Date: 20050616
  Receipt Date: 20050607
  Transmission Date: 20051028
  Serious: Yes (Other)
  Sender: FDA-Public Use
  Company Number: 2005085305

PATIENT
  Sex: Male
  Weight: 86.1834 kg

DRUGS (5)
  1. LIPITOR [Suspect]
     Indication: BLOOD CHOLESTEROL INCREASED
     Dosage: 10 MG (10 MG, 1 IN 1 D), ORAL
     Route: 048
  2. BEXTRA [Suspect]
     Indication: SPINAL COLUMN STENOSIS
     Dosage: 20 MG (20 MG, 1 IN 1 D), ORAL
     Route: 048
     Dates: start: 20030101
  3. DIOVAN ^CIBA-GEIGY^ (VALSARTAN) [Concomitant]
  4. CALCIUM CHANNEL BLOCKERS (CALCIUM CHANNEL BLOCKERS) [Concomitant]
  5. BETA BLOCKING AGENTS (BETA BLOCKING AGENTS) [Concomitant]

REACTIONS (5)
  - JOINT DISLOCATION [None]
  - MYALGIA [None]
  - REFUSAL OF TREATMENT BY PATIENT [None]
  - SPINAL COLUMN STENOSIS [None]
  - WEIGHT FLUCTUATION [None]
